FAERS Safety Report 9301641 (Version 1)
Quarter: 2013Q2

REPORT INFORMATION
  Report Type: Spontaneous
  Country: US (occurrence: None)
  Receive Date: 20130520
  Receipt Date: 20130520
  Transmission Date: 20140414
  Serious: No
  Sender: FDA-Public Use
  Company Number: None

PATIENT
  Sex: Female

DRUGS (4)
  1. ZELBORAF [Suspect]
     Indication: SKIN CANCER
     Dosage: 4, BID, PO
     Route: 048
  2. HCTZ [Concomitant]
  3. PRAVASTATIN [Concomitant]
  4. LEVOXYL [Concomitant]

REACTIONS (1)
  - Drug ineffective [None]
